FAERS Safety Report 6283893-5 (Version None)
Quarter: 2009Q3

REPORT INFORMATION
  Report Type: 
  Country: None (occurrence: None)
  Receive Date: 20090723
  Receipt Date: 20090723
  Transmission Date: 20100115
  Serious: Yes (Hospitalization)
  Sender: FDA-Public Use
  Company Number: None

PATIENT
  Age: 70 Year
  Sex: Female
  Weight: 79.3 kg

DRUGS (10)
  1. AMBIEN [Suspect]
     Indication: INSOMNIA
     Dosage: 5MG OHS PRN, REPEATEDX1 ORAL
     Route: 048
  2. ZOLOFT [Concomitant]
  3. WELLBUTRIN [Concomitant]
  4. INDERAL [Concomitant]
  5. DETROL [Concomitant]
  6. HYDROCHLOROTHIAZIDE [Concomitant]
  7. CELEBREX [Concomitant]
  8. COUMADIN [Concomitant]
  9. PRIMIDONE [Concomitant]
  10. PREMARIN [Concomitant]

REACTIONS (10)
  - AMNESTIC DISORDER [None]
  - CERVICAL VERTEBRAL FRACTURE [None]
  - CONFUSIONAL STATE [None]
  - CONTUSION [None]
  - FALL [None]
  - HEADACHE [None]
  - INSOMNIA [None]
  - LACERATION [None]
  - LOSS OF CONSCIOUSNESS [None]
  - TENDERNESS [None]
